FAERS Safety Report 13798092 (Version 2)
Quarter: 2017Q3

REPORT INFORMATION
  Report Type: Spontaneous
  Country: US (occurrence: US)
  Receive Date: 20170727
  Receipt Date: 20170818
  Transmission Date: 20171127
  Serious: No
  Sender: FDA-Public Use
  Company Number: US-PFIZER INC-2017325108

PATIENT
  Age: 58 Year
  Sex: Male
  Weight: 79 kg

DRUGS (1)
  1. SUMYCIN [Suspect]
     Active Substance: TETRACYCLINE
     Indication: PNEUMONIA
     Dosage: UNK
     Dates: start: 1962

REACTIONS (4)
  - Tooth disorder [Unknown]
  - Wisdom teeth removal [Unknown]
  - Enamel anomaly [Unknown]
  - Weight decreased [Unknown]
